FAERS Safety Report 5271371-1 (Version None)
Quarter: 2007Q1

REPORT INFORMATION
  Report Type: 
  Country: None (occurrence: None)
  Receive Date: 20070321
  Receipt Date: 20070313
  Transmission Date: 20070707
  Serious: Yes (Other)
  Sender: FDA-Public Use
  Company Number: GB-SANOFI-SYNTHELABO-A01200702758

PATIENT
  Age: 65 Year
  Sex: Female

DRUGS (3)
  1. OTHER MEDICATIONS NOS [Concomitant]
     Dosage: UNK
     Route: 065
  2. NON STEROIDS (NOS) [Concomitant]
     Dosage: UNK
     Route: 065
  3. PLAQUENIL [Suspect]
     Indication: SYSTEMIC LUPUS ERYTHEMATOSUS
     Dosage: 200 MG
     Route: 048

REACTIONS (1)
  - SUBARACHNOID HAEMORRHAGE [None]
